FAERS Safety Report 7809465-6 (Version None)
Quarter: 2011Q4

REPORT INFORMATION
  Report Type: 
  Country: None (occurrence: None)
  Receive Date: 20111012
  Receipt Date: 20110929
  Transmission Date: 20120403
  Serious: Yes (Other)
  Sender: FDA-Public Use
  Company Number: PHHY2011BR87025

PATIENT
  Age: 76 Year
  Sex: Male

DRUGS (3)
  1. ATENOLOL [Concomitant]
     Indication: HYPERTENSION
     Dosage: 50 MG, UNK
  2. VASTAREL [Concomitant]
     Indication: HYPERTENSION
  3. DIOVAN HCT [Suspect]
     Indication: HYPERTENSION
     Dosage: 80 MG VALS/12.5 MG HYDR, 1 DF, DAILY
     Route: 048

REACTIONS (4)
  - MENTAL IMPAIRMENT [None]
  - PARKINSON'S DISEASE [None]
  - DEMENTIA ALZHEIMER'S TYPE [None]
  - DEPRESSION [None]
